FAERS Safety Report 22351959 (Version 2)
Quarter: 2023Q2

REPORT INFORMATION
  Report Type: Spontaneous
  Country: CN (occurrence: CN)
  Receive Date: 20230522
  Receipt Date: 20230526
  Transmission Date: 20230721
  Serious: Yes (Hospitalization, Other)
  Sender: FDA-Public Use
  Company Number: CN-009507513-2305CHN005500

PATIENT
  Age: 68 Year
  Sex: Male

DRUGS (3)
  1. KEYTRUDA [Suspect]
     Active Substance: PEMBROLIZUMAB
     Indication: Oesophageal squamous cell carcinoma metastatic
     Dosage: 200 MILLIGRAM, Q3W
     Dates: start: 20200911
  2. FLUOROURACIL [Suspect]
     Active Substance: FLUOROURACIL
     Indication: Oesophageal squamous cell carcinoma metastatic
     Dosage: 800 MG/M2, D1-5, Q3W
     Dates: start: 20200911
  3. CISPLATIN [Suspect]
     Active Substance: CISPLATIN
     Indication: Oesophageal squamous cell carcinoma metastatic
     Dosage: 80 MG/M2, IV, Q3W
     Route: 042
     Dates: start: 20200911

REACTIONS (14)
  - Immune-mediated lung disease [Recovering/Resolving]
  - Adrenocortical insufficiency acute [Recovering/Resolving]
  - Hypothyroidism [Recovering/Resolving]
  - Skin toxicity [Not Recovered/Not Resolved]
  - Cough [Not Recovered/Not Resolved]
  - Asthenia [Recovering/Resolving]
  - Chest discomfort [Unknown]
  - Dyspnoea [Recovering/Resolving]
  - Nausea [Recovering/Resolving]
  - Vomiting [Recovering/Resolving]
  - Oliguria [Recovering/Resolving]
  - Apathy [Recovering/Resolving]
  - Mental disorder [Recovering/Resolving]
  - Irritability [Unknown]

NARRATIVE: CASE EVENT DATE: 20210101
